FAERS Safety Report 5023278-2 (Version None)
Quarter: 2006Q2

REPORT INFORMATION
  Report Type: 
  Country: None (occurrence: None)
  Receive Date: 20060605
  Receipt Date: 20060601
  Transmission Date: 20061013
  Serious: Yes (Hospitalization)
  Sender: FDA-Public Use
  Company Number: OMPQ-NO-0606L-0407

PATIENT
  Age: 32 Year
  Sex: Male

DRUGS (5)
  1. OMNIPAQUE 140 [Suspect]
     Indication: ANGINA PECTORIS
     Dosage: 30 ML, SINGLE DOSE, P.O.
     Route: 048
  2. GLIPIZIDE [Concomitant]
  3. ATENOLOL [Concomitant]
  4. ASPIRIN [Concomitant]
  5. SORBITRATE [Concomitant]

REACTIONS (8)
  - BLOOD GLUCOSE INCREASED [None]
  - DISORIENTATION [None]
  - GLOBAL AMNESIA [None]
  - HEADACHE [None]
  - POST PROCEDURAL COMPLICATION [None]
  - RETCHING [None]
  - RETROGRADE AMNESIA [None]
  - SPEECH DISORDER [None]
